FAERS Safety Report 19970371 (Version 2)
Quarter: 2021Q4

REPORT INFORMATION
  Report Type: Report from Study
  Country: None (occurrence: CA)
  Receive Date: 20211020
  Receipt Date: 20211021
  Transmission Date: 20220303
  Serious: Yes (Other)
  Sender: FDA-Public Use
  Company Number: CA-ABBVIE-21K-028-4123620-00

PATIENT
  Age: 45 Year
  Sex: Male

DRUGS (1)
  1. HUMIRA [Suspect]
     Active Substance: ADALIMUMAB
     Indication: Crohn^s disease
     Route: 058
     Dates: start: 20191203

REACTIONS (13)
  - Drain placement [Unknown]
  - Frequent bowel movements [Unknown]
  - Rectal ulcer [Unknown]
  - Procedural pain [Unknown]
  - Feeling hot [Unknown]
  - Fistula discharge [Not Recovered/Not Resolved]
  - Skin disorder [Unknown]
  - Fistula [Recovered/Resolved]
  - Inflammation [Unknown]
  - Blister [Unknown]
  - Pain [Unknown]
  - Tenderness [Unknown]
  - Arthralgia [Not Recovered/Not Resolved]

NARRATIVE: CASE EVENT DATE: 20200601
